FAERS Safety Report 25062957 (Version 2)
Quarter: 2025Q1

REPORT INFORMATION
  Report Type: Spontaneous
  Country: JP (occurrence: JP)
  Receive Date: 20250311
  Receipt Date: 20250321
  Transmission Date: 20250409
  Serious: Yes (Other)
  Sender: RANBAXY
  Company Number: JP-SUN PHARMACEUTICAL INDUSTRIES LTD-2025RR-498654

PATIENT
  Age: 42 Year
  Sex: Female

DRUGS (3)
  1. CAPECITABINE [Interacting]
     Active Substance: CAPECITABINE
     Indication: Rectal cancer
     Dosage: 3000 MILLIGRAM, DAILY
     Route: 065
  2. PHENYTOIN [Interacting]
     Active Substance: PHENYTOIN
     Indication: Epilepsy
     Route: 065
  3. OXALIPLATIN [Suspect]
     Active Substance: OXALIPLATIN
     Indication: Rectal cancer
     Dosage: 190 MILLIGRAM, DAILY
     Route: 065

REACTIONS (5)
  - Dizziness [Unknown]
  - Muscular weakness [Unknown]
  - Toxicity to various agents [Unknown]
  - Drug interaction [Unknown]
  - Neutropenia [Unknown]
